FAERS Safety Report 16437116 (Version 1)
Quarter: 2019Q2

REPORT INFORMATION
  Report Type: Spontaneous
  Country: CA (occurrence: CA)
  Receive Date: 20190615
  Receipt Date: 20190615
  Transmission Date: 20190711
  Serious: Yes (Other)
  Sender: FDA-Public Use
  Company Number: PHHY2019CA133339

PATIENT
  Age: 45 Year
  Sex: Male

DRUGS (1)
  1. COSENTYX [Suspect]
     Active Substance: SECUKINUMAB
     Indication: ANKYLOSING SPONDYLITIS
     Dosage: 150 MG, UNK (1ST INJECTION)
     Route: 065

REACTIONS (7)
  - Erythema multiforme [Unknown]
  - Psoriasis [Unknown]
  - Rash pustular [Unknown]
  - Skin exfoliation [Unknown]
  - Skin swelling [Unknown]
  - Oropharyngeal discomfort [Unknown]
  - Rash [Unknown]
